FAERS Safety Report 4877879-2 (Version None)
Quarter: 2006Q1

REPORT INFORMATION
  Report Type: 
  Country: None (occurrence: None)
  Receive Date: 20060109
  Receipt Date: 20060103
  Transmission Date: 20060701
  Serious: Yes (Death, Hospitalization)
  Sender: FDA-Public Use
  Company Number: HQWYE203805JAN06

PATIENT
  Age: 53 Year
  Sex: Male

DRUGS (8)
  1. RAPAMUNE [Suspect]
     Indication: PROPHYLAXIS AGAINST TRANSPLANT REJECTION
     Dosage: 5 MG 1X PER 1 DAY, ORAL
     Route: 048
     Dates: start: 20040614, end: 20051209
  2. INSULIN [Concomitant]
  3. ATORVASTATIN CALCIUM [Concomitant]
  4. NITROGLYCERIN  ^A.L.^ (GLYCERYL TRINITRATE) [Concomitant]
  5. ASPIRIN [Concomitant]
  6. ERYTHROPOIETIN (ERYHROPOIETIN) [Concomitant]
  7. FENOFIBRATE [Concomitant]
  8. AZATHIOPRINE [Concomitant]

REACTIONS (6)
  - ACUTE MYOCARDIAL INFARCTION [None]
  - ANGINA UNSTABLE [None]
  - AORTIC VALVE STENOSIS [None]
  - BLOOD CREATINE INCREASED [None]
  - CORONARY ARTERY OCCLUSION [None]
  - HAEMOGLOBIN DECREASED [None]
